FAERS Safety Report 12381726 (Version 1)
Quarter: 2016Q2

REPORT INFORMATION
  Report Type: Spontaneous
  Country: US (occurrence: US)
  Receive Date: 20160518
  Receipt Date: 20160518
  Transmission Date: 20160815
  Serious: No
  Sender: FDA-Public Use
  Company Number: US-TEIKOKU PHARMA USA-TPU2016-00296

PATIENT
  Age: 36 Year
  Sex: Male
  Weight: 77.18 kg

DRUGS (2)
  1. LIDOCAINE PATCH [Suspect]
     Active Substance: LIDOCAINE
     Indication: TESTICULAR PAIN
     Dosage: ONE 5% PATCH CUT INTO THREE SMALL PIECES. ONE PIECE APPLIED TO FRONT FEMORAL NERVE AREA; ONE ACROSS
     Route: 061
     Dates: start: 201604
  2. LIDOCAINE PATCH [Suspect]
     Active Substance: LIDOCAINE
     Indication: BACK PAIN

REACTIONS (1)
  - Neuralgia [Unknown]

NARRATIVE: CASE EVENT DATE: 201604
